FAERS Safety Report 10189250 (Version 3)
Quarter: 2014Q3

REPORT INFORMATION
  Report Type: Spontaneous
  Country: JP (occurrence: JP)
  Receive Date: 20140522
  Receipt Date: 20140711
  Transmission Date: 20150326
  Serious: Yes (Death, Hospitalization, Other)
  Sender: FDA-Public Use
  Company Number: JP-OTSUKA-JP-2014-14185

PATIENT
  Age: 62 Year
  Sex: Male

DRUGS (29)
  1. SAMSCA [Suspect]
     Active Substance: TOLVAPTAN
     Dosage: 11.25 MG MILLIGRAM(S), DAILY DOSE
     Route: 048
     Dates: start: 20130914, end: 20131027
  2. DIART [Concomitant]
     Active Substance: AZOSEMIDE
     Dosage: 60 MG MILLIGRAM(S), DAILY DOSE
     Route: 048
     Dates: start: 20130802, end: 20130802
  3. MINOCYCLINE HYDROCHLORIDE. [Concomitant]
     Active Substance: MINOCYCLINE HYDROCHLORIDE
     Dosage: UNK
     Route: 065
     Dates: start: 20130817, end: 20130821
  4. DIART [Concomitant]
     Active Substance: AZOSEMIDE
     Dosage: 30 MG MILLIGRAM(S), DAILY DOSE
     Route: 048
     Dates: start: 20130724, end: 20130801
  5. AZUNOL [Concomitant]
     Active Substance: SODIUM GUALENATE
     Indication: DECUBITUS ULCER
     Route: 061
  6. SAMSCA [Suspect]
     Active Substance: TOLVAPTAN
     Dosage: 22.5 MG MILLIGRAM(S), DAILY DOSE
     Route: 048
     Dates: start: 20130906, end: 20130906
  7. SAMSCA [Suspect]
     Active Substance: TOLVAPTAN
     Dosage: 15 MG MILLIGRAM(S), DAILY DOSE
     Route: 048
     Dates: start: 20131028, end: 20131109
  8. FUROSEMIDE. [Suspect]
     Active Substance: FUROSEMIDE
     Indication: PRODUCT USED FOR UNKNOWN INDICATION
     Dosage: 40 MG MILLIGRAM(S), DAILY DOSE
     Route: 048
     Dates: start: 20130806, end: 20130906
  9. DOBUTAMINE [Concomitant]
     Active Substance: DOBUTAMINE\DOBUTAMINE HYDROCHLORIDE
     Dosage: UNK
     Route: 042
  10. MEROPENEM. [Concomitant]
     Active Substance: MEROPENEM
     Dosage: UNK
     Route: 041
     Dates: start: 20130628, end: 20130705
  11. CATECHOLAMINE [Concomitant]
     Dosage: UNK
     Route: 065
  12. NATRIX [Concomitant]
     Active Substance: INDAPAMIDE
     Dosage: UNK
     Route: 048
  13. EPLERENONE. [Concomitant]
     Active Substance: EPLERENONE
     Dosage: 25 MG MILLIGRAM(S), DAILY DOSE
     Route: 048
     Dates: start: 20130702, end: 20131014
  14. FLOMOXEF SODIUM [Concomitant]
     Active Substance: FLOMOXEF SODIUM
     Dosage: UNK
     Route: 041
     Dates: start: 20131007, end: 20131015
  15. ANCARON [Concomitant]
     Active Substance: AMIODARONE HYDROCHLORIDE
     Indication: VENTRICULAR TACHYCARDIA
     Route: 048
  16. CADEX [Concomitant]
     Indication: DECUBITUS ULCER
     Route: 061
  17. LASIX [Suspect]
     Active Substance: FUROSEMIDE
     Dosage: 100 MG MILLIGRAM(S), DAILY DOSE
     Route: 041
     Dates: start: 20130804, end: 20130804
  18. DIART [Concomitant]
     Active Substance: AZOSEMIDE
     Dosage: 60 MG MILLIGRAM(S), DAILY DOSE
     Route: 048
     Dates: start: 20130702, end: 20130723
  19. SAMSCA [Suspect]
     Active Substance: TOLVAPTAN
     Indication: CARDIAC FAILURE CONGESTIVE
     Dosage: 7.5 MG MILLIGRAM(S), DAILY DOSE
     Route: 048
     Dates: start: 20130731, end: 20130905
  20. HANP [Concomitant]
     Active Substance: CARPERITIDE
     Dosage: UNK
     Route: 041
  21. DOPAMINE [Concomitant]
     Active Substance: DOPAMINE\DOPAMINE HYDROCHLORIDE
     Dosage: UNK
     Route: 042
  22. MEROPENEM. [Concomitant]
     Active Substance: MEROPENEM
     Dosage: UNK
     Route: 041
     Dates: start: 20130909, end: 20130922
  23. CEFOPERAZONE SODIUM/SULBACTAM SODIUM [Concomitant]
     Active Substance: CEFOPERAZONE SODIUM\SULBACTAM SODIUM
     Dosage: UNK
     Route: 041
     Dates: start: 20130808, end: 20130814
  24. ACARDI [Concomitant]
     Dosage: UNK
     Route: 048
  25. ZINC OXIDE. [Concomitant]
     Active Substance: ZINC OXIDE
     Indication: DECUBITUS ULCER
     Route: 061
  26. SAMSCA [Suspect]
     Active Substance: TOLVAPTAN
     Dosage: 15 MG MILLIGRAM(S), DAILY DOSE
     Route: 048
     Dates: start: 20130907, end: 20130913
  27. LASIX [Suspect]
     Active Substance: FUROSEMIDE
     Indication: PRODUCT USED FOR UNKNOWN INDICATION
     Dosage: 200 MG MILLIGRAM(S), DAILY DOSE
     Route: 041
     Dates: start: 20130803, end: 20130803
  28. LASIX [Suspect]
     Active Substance: FUROSEMIDE
     Dosage: 50 MG MILLIGRAM(S), DAILY DOSE
     Route: 041
     Dates: start: 20130805, end: 20130805
  29. PAZUFLOXACIN MESILATE [Concomitant]
     Active Substance: PAZUFLOXACIN MESILATE
     Dosage: UNK
     Route: 041
     Dates: start: 20131021, end: 20131022

REACTIONS (13)
  - Hepatic function abnormal [Unknown]
  - Thrombosis in device [Not Recovered/Not Resolved]
  - Depression [Unknown]
  - Ileus [Unknown]
  - Staphylococcal infection [Unknown]
  - Gallbladder perforation [Unknown]
  - Blood pressure decreased [Unknown]
  - Cardiac failure [Fatal]
  - Blood creatine phosphokinase increased [Unknown]
  - Pneumonia [Unknown]
  - Renal failure [Unknown]
  - Ventricular fibrillation [Unknown]
  - Overdose [Unknown]

NARRATIVE: CASE EVENT DATE: 20130808
